FAERS Safety Report 7825077-2 (Version None)
Quarter: 2011Q4

REPORT INFORMATION
  Report Type: 
  Country: None (occurrence: None)
  Receive Date: 20111019
  Receipt Date: 20110907
  Transmission Date: 20120403
  Serious: No
  Sender: FDA-Public Use
  Company Number: US-BRISTOL-MYERS SQUIBB COMPANY-15846298

PATIENT
  Age: 78 Year
  Sex: Female
  Weight: 77 kg

DRUGS (2)
  1. BETAXOLOL [Concomitant]
  2. AVALIDE [Suspect]
     Dosage: ALSO TAKEN AVALIDE RM 300MG/12.5MG TABS EXPIRATION DATE: 16JUL2006  NDC: 0087-2776-31

REACTIONS (3)
  - DRUG INEFFECTIVE [None]
  - SWELLING [None]
  - DYSURIA [None]
